FAERS Safety Report 9566195 (Version 1)
Quarter: 2013Q3

REPORT INFORMATION
  Report Type: Spontaneous
  Country: US (occurrence: US)
  Receive Date: 20130930
  Receipt Date: 20130930
  Transmission Date: 20140515
  Serious: No
  Sender: FDA-Public Use
  Company Number: US-ASTRAZENECA-2013SE64245

PATIENT
  Sex: Male

DRUGS (8)
  1. BRILINTA [Suspect]
     Route: 048
  2. ASA [Concomitant]
     Dosage: 81MG
  3. DISTOLIC [Concomitant]
     Dosage: 10MG
  4. CALCIUM GLUCONITE [Concomitant]
     Dosage: 1000MG
  5. LIPITOR [Concomitant]
     Dosage: 20MG
  6. LIPOFEN [Concomitant]
     Dosage: 150MG
  7. LOVASA [Concomitant]
     Dosage: 1000MG
  8. MAXIDE [Concomitant]
     Dosage: 25MG

REACTIONS (1)
  - Cheilitis [Unknown]
